FAERS Safety Report 23162816 (Version 1)
Quarter: 2023Q4

REPORT INFORMATION
  Report Type: Spontaneous
  Country: US (occurrence: US)
  Receive Date: 20231109
  Receipt Date: 20231109
  Transmission Date: 20240110
  Serious: No
  Sender: FDA-Public Use
  Company Number: US-SANDOZ-SDZ2023US051063

PATIENT
  Sex: Female

DRUGS (4)
  1. ALPRAZOLAM [Suspect]
     Active Substance: ALPRAZOLAM
     Indication: Insomnia
     Dosage: 0.5 MG, TAKE 1 TABLET BY MOUTH NIGHTLY
     Route: 048
     Dates: start: 20230929
  2. ANASTROZOLE [Suspect]
     Active Substance: ANASTROZOLE
     Indication: Product used for unknown indication
     Dosage: UNK
     Route: 065
  3. EXEMESTANE [Suspect]
     Active Substance: EXEMESTANE
     Indication: Product used for unknown indication
     Route: 065
  4. IBRANCE [Suspect]
     Active Substance: PALBOCICLIB
     Indication: Breast cancer female
     Dosage: 125 MG,  TAKE 1 TABLET BY MOUTH DAILY ON DAYS 1 TO 21 OF EACH 28 DAY CYCLE
     Route: 048

REACTIONS (1)
  - Ill-defined disorder [Unknown]
